FAERS Safety Report 6213663-5 (Version None)
Quarter: 2009Q2

REPORT INFORMATION
  Report Type: 
  Country: None (occurrence: None)
  Receive Date: 20090601
  Receipt Date: 20090514
  Transmission Date: 20091009
  Serious: Yes (Hospitalization)
  Sender: FDA-Public Use
  Company Number: 8044822

PATIENT
  Age: 68 Year
  Sex: Female
  Weight: 53.6 kg

DRUGS (10)
  1. CDP870 [Suspect]
     Indication: RHEUMATOID ARTHRITIS
     Dosage: SC
     Route: 058
     Dates: start: 20090224, end: 20090324
  2. PLACEBO [Suspect]
     Indication: RHEUMATOID ARTHRITIS
     Dosage: SC
     Route: 058
     Dates: start: 20090224, end: 20090324
  3. CILOSTAZOL [Concomitant]
  4. REBAMIPIDE [Concomitant]
  5. MINOCYCLINE HYDROCHLORIDE [Concomitant]
  6. LOXOPROFEN SODIUM [Concomitant]
  7. PREDNISOLONE [Concomitant]
  8. RABEPRAZOLE SODIUM [Concomitant]
  9. SARPOGRELATE HYDROCHLORIDE [Concomitant]
  10. SODIUM ISONIAZIDOMETHANESULFONATE [Concomitant]

REACTIONS (16)
  - ANAEMIA [None]
  - CHEST PAIN [None]
  - COUGH [None]
  - CYTOMEGALOVIRUS TEST POSITIVE [None]
  - DYSPNOEA EXERTIONAL [None]
  - ELECTROCARDIOGRAM T WAVE INVERSION [None]
  - HAEMATURIA [None]
  - INTERSTITIAL LUNG DISEASE [None]
  - MYCOPLASMA SEROLOGY POSITIVE [None]
  - PETECHIAE [None]
  - PNEUMOCYSTIS JIROVECI PNEUMONIA [None]
  - PRURITUS [None]
  - PULMONARY ALVEOLAR HAEMORRHAGE [None]
  - RENAL IMPAIRMENT [None]
  - STRESS CARDIOMYOPATHY [None]
  - VENTRICULAR EXTRASYSTOLES [None]
